FAERS Safety Report 11365828 (Version 1)
Quarter: 2015Q3

REPORT INFORMATION
  Report Type: Report from Study
  Country: US (occurrence: US)
  Receive Date: 20150811
  Receipt Date: 20150811
  Transmission Date: 20151125
  Serious: No
  Sender: FDA-Public Use
  Company Number: PHHY2013US026772

PATIENT
  Age: 6 Year
  Sex: Female

DRUGS (4)
  1. ICL670A [Suspect]
     Active Substance: DEFERASIROX
     Dosage: 500 OT, UNK
     Route: 048
     Dates: start: 20130526, end: 20140314
  2. ICL670A [Suspect]
     Active Substance: DEFERASIROX
     Indication: HAEMOSIDEROSIS
     Dosage: 500 OT, UNK
     Route: 048
     Dates: start: 20120616, end: 20130121
  3. ICL670A [Suspect]
     Active Substance: DEFERASIROX
     Dosage: 554 OT, UNK
     Route: 048
     Dates: start: 20130122
  4. ICL670A [Suspect]
     Active Substance: DEFERASIROX
     Dosage: 464 OT, UNK
     Route: 048
     Dates: start: 20130330, end: 20130419

REACTIONS (3)
  - Abdominal pain [Recovered/Resolved]
  - Conjunctival cyst [Not Recovered/Not Resolved]
  - Abdominal pain [Recovered/Resolved]

NARRATIVE: CASE EVENT DATE: 20130121
